FAERS Safety Report 18833691 (Version 12)
Quarter: 2021Q4

REPORT INFORMATION
  Report Type: Report from Study
  Country: GB (occurrence: GB)
  Receive Date: 20210203
  Receipt Date: 20211203
  Transmission Date: 20220303
  Serious: Yes (Other)
  Sender: FDA-Public Use
  Company Number: GB-ABBVIE-21K-167-3755818-00

PATIENT
  Age: 41 Year
  Sex: Female

DRUGS (6)
  1. RITONAVIR [Suspect]
     Active Substance: RITONAVIR
     Indication: HIV infection
     Dosage: 1 (TRIMESTER)
     Route: 048
     Dates: start: 20190205
  2. EMTRICITABINE\TENOFOVIR DISOPROXIL FUMARATE [Suspect]
     Active Substance: EMTRICITABINE\TENOFOVIR DISOPROXIL FUMARATE
     Indication: HIV infection
     Dosage: 1 TAB/CAP, QD, 1 (TRIMESTER)
     Route: 048
     Dates: start: 20101110
  3. EVOTAZ [Suspect]
     Active Substance: ATAZANAVIR SULFATE\COBICISTAT
     Indication: HIV infection
     Dosage: 1 TAB/CAP 1 (TRIMESTER)
     Route: 048
     Dates: start: 20171014, end: 20190204
  4. ATAZANAVIR [Suspect]
     Active Substance: ATAZANAVIR
     Indication: HIV infection
     Dosage: 300 MILLIGRAM, QD, AUROBINDO PHARMA 1 (TRIMESTER)
     Route: 048
     Dates: start: 20190205
  5. TELBIVUDINE [Suspect]
     Active Substance: TELBIVUDINE
     Indication: Product used for unknown indication
     Route: 065
  6. ATAZANAVIR SULFATE\COBICISTAT [Suspect]
     Active Substance: ATAZANAVIR SULFATE\COBICISTAT
     Indication: Product used for unknown indication
     Dosage: TOTAL DAILY DOSE WAS 1
     Route: 048

REACTIONS (3)
  - Abortion induced [Unknown]
  - Maternal exposure during pregnancy [Unknown]
  - Menstruation irregular [Unknown]

NARRATIVE: CASE EVENT DATE: 20190513
